FAERS Safety Report 6509192-1 (Version None)
Quarter: 2009Q4

REPORT INFORMATION
  Report Type: 
  Country: None (occurrence: None)
  Receive Date: 20091221
  Receipt Date: 20091207
  Transmission Date: 20100525
  Serious: Yes (Hospitalization)
  Sender: FDA-Public Use
  Company Number: JP-MYLANLABS-2009S1020984

PATIENT
  Age: 52 Year
  Sex: Male

DRUGS (4)
  1. ALLOPURINOL [Suspect]
     Indication: HYPERURICAEMIA
  2. FUROSEMIDE [Concomitant]
     Indication: CARDIAC AMYLOIDOSIS
  3. AMITRIPTYLINE [Concomitant]
     Indication: CARDIAC AMYLOIDOSIS
  4. SPIRONOLACTONE [Concomitant]
     Indication: HYPERTENSION

REACTIONS (3)
  - DRUG RASH WITH EOSINOPHILIA AND SYSTEMIC SYMPTOMS [None]
  - GINGIVAL PAIN [None]
  - MOUTH ULCERATION [None]
